FAERS Safety Report 24394349 (Version 1)
Quarter: 2024Q4

REPORT INFORMATION
  Report Type: Report from Study
  Country: CN (occurrence: CN)
  Receive Date: 20241004
  Receipt Date: 20241004
  Transmission Date: 20250115
  Serious: Yes (Other)
  Sender: JOHNSON AND JOHNSON
  Company Number: CN-JNJFOC-20240970088

PATIENT

DRUGS (7)
  1. RISPERDAL [Suspect]
     Active Substance: RISPERIDONE
     Indication: Mental disorder
     Dosage: WITH 0.5 MG INCREASED EVERY 2 DAYS, THE MAXIMUM DOSE WAS 5 MG/D
     Route: 065
  2. QUETIAPINE FUMARATE [Suspect]
     Active Substance: QUETIAPINE FUMARATE
     Indication: Mental disorder
     Dosage: GIVEN WITH WARM WATER 0.5 H BEFORE MEALS; WITH 50 MG INCREASED EVERY 2 D, MAXIMUM DOSE WAS 300 MG/D
     Route: 065
  3. HERBALS [Concomitant]
     Active Substance: HERBALS
     Indication: Tachycardia
     Route: 065
  4. PROPRANOLOL HYDROCHLORIDE [Concomitant]
     Active Substance: PROPRANOLOL HYDROCHLORIDE
     Indication: Akathisia
     Route: 065
  5. CLONAZEPAM [Concomitant]
     Active Substance: CLONAZEPAM
     Indication: Insomnia
     Route: 065
  6. VITAMIN B6 [Concomitant]
     Active Substance: PYRIDOXINE HYDROCHLORIDE
     Indication: Gastrointestinal disorder
     Route: 065
  7. TRIHEXYPHENIDYL HYDROCHLORIDE [Concomitant]
     Active Substance: TRIHEXYPHENIDYL HYDROCHLORIDE
     Indication: Extrapyramidal disorder
     Route: 065

REACTIONS (7)
  - Renal impairment [Unknown]
  - Hepatic function abnormal [Unknown]
  - Tremor [Unknown]
  - Dizziness [Unknown]
  - Muscle tightness [Unknown]
  - Therapeutic response unexpected [Unknown]
  - Off label use [Unknown]
